FAERS Safety Report 20769621 (Version 1)
Quarter: 2022Q2

REPORT INFORMATION
  Report Type: Report from Study
  Country: US (occurrence: US)
  Receive Date: 20220429
  Receipt Date: 20220429
  Transmission Date: 20220721
  Serious: Yes (Other)
  Sender: FDA-Public Use
  Company Number: US-ORG100014127-2022000480

PATIENT
  Age: 64 Year
  Sex: Female

DRUGS (2)
  1. LYSODREN [Suspect]
     Active Substance: MITOTANE
     Indication: Adrenocortical carcinoma
     Dosage: INITIAL DOSE 500MG BID W1, UP-TITRATED TO 1000MG BID W2, 1500MG BID W3 AND 2000MG BID W4
     Route: 048
     Dates: start: 20220408
  2. LYSODREN [Suspect]
     Active Substance: MITOTANE
     Indication: Adrenocortical carcinoma
     Dosage: IINITIAL DOSE 500MG BID W1, UP-TITRATED TO 1000MG BID W2, 1500MG BID W3 AND 2000MG BID W4
     Route: 048
     Dates: start: 202204

REACTIONS (1)
  - Rash [Unknown]

NARRATIVE: CASE EVENT DATE: 20220415
